FAERS Safety Report 24595045 (Version 1)
Quarter: 2024Q4

REPORT INFORMATION
  Report Type: Spontaneous
  Country: AU (occurrence: AU)
  Receive Date: 20241108
  Receipt Date: 20241108
  Transmission Date: 20250115
  Serious: Yes (Hospitalization, Other)
  Sender: MERCK
  Company Number: AU-009507513-2411AUS002420

PATIENT
  Age: 71 Year
  Sex: Female

DRUGS (7)
  1. KEYTRUDA [Suspect]
     Active Substance: PEMBROLIZUMAB
     Indication: Neoplasm malignant
     Dosage: 200 MILLIGRAM, QM
     Route: 042
     Dates: start: 20240807, end: 20240807
  2. ONVAPEGLEUKIN ALFA [Suspect]
     Active Substance: ONVAPEGLEUKIN ALFA
     Indication: Neoplasm malignant
     Dosage: 4.896 MILLIGRAM, QM
     Route: 042
     Dates: start: 20240807, end: 20240807
  3. PANADOL [Concomitant]
     Active Substance: ACETAMINOPHEN
  4. DULOXETINE [Concomitant]
     Active Substance: DULOXETINE
  5. VALIUM [Concomitant]
     Active Substance: DIAZEPAM
  6. METHADONE [Concomitant]
     Active Substance: METHADONE HYDROCHLORIDE
  7. HYDROMORPHONE [Concomitant]
     Active Substance: HYDROMORPHONE

REACTIONS (1)
  - Renal impairment [Unknown]

NARRATIVE: CASE EVENT DATE: 20240811
